FAERS Safety Report 6271580-9 (Version None)
Quarter: 2009Q3

REPORT INFORMATION
  Report Type: 
  Country: None (occurrence: None)
  Receive Date: 20090713
  Receipt Date: 20090713
  Transmission Date: 20100115
  Serious: Yes (Other)
  Sender: FDA-Public Use
  Company Number: 52963

PATIENT
  Sex: Male
  Weight: 99 kg

DRUGS (1)
  1. VECURONIUM BROMIDE [Suspect]
     Indication: ANAESTHESIA

REACTIONS (1)
  - DRUG INEFFECTIVE [None]
